FAERS Safety Report 25478574 (Version 1)
Quarter: 2025Q2

REPORT INFORMATION
  Report Type: Spontaneous
  Country: CN (occurrence: CN)
  Receive Date: 20250625
  Receipt Date: 20250625
  Transmission Date: 20250716
  Serious: Yes (Hospitalization, Disabling, Other)
  Sender: SANOFI AVENTIS
  Company Number: CN-SA-2025SA177963

PATIENT
  Age: 26 Year
  Sex: Female
  Weight: 55 kg

DRUGS (5)
  1. ZOLPIDEM TARTRATE [Suspect]
     Active Substance: ZOLPIDEM TARTRATE
     Indication: Obsessive-compulsive disorder
     Dosage: 70 MG, QD
     Route: 048
     Dates: start: 20250301, end: 20250416
  2. ZOLPIDEM TARTRATE [Suspect]
     Active Substance: ZOLPIDEM TARTRATE
     Dosage: 50 MG, QD
     Route: 048
     Dates: start: 20250516, end: 20250616
  3. VALPROATE SODIUM [Concomitant]
     Active Substance: VALPROATE SODIUM
     Dates: start: 202504
  4. QUETIAPINE FUMARATE [Concomitant]
     Active Substance: QUETIAPINE FUMARATE
     Dosage: 0.3 G, QD
     Dates: start: 202504
  5. LORAZEPAM [Concomitant]
     Active Substance: LORAZEPAM
     Dosage: 10 MG, QD
     Dates: start: 202504

REACTIONS (12)
  - Drug abuse [Unknown]
  - Dizziness [Unknown]
  - Palpitations [Unknown]
  - Chest discomfort [Unknown]
  - Withdrawal syndrome [Recovering/Resolving]
  - Affect lability [Recovering/Resolving]
  - Depressed mood [Recovering/Resolving]
  - Apathy [Recovering/Resolving]
  - Irritability [Recovering/Resolving]
  - Decreased appetite [Recovering/Resolving]
  - Negative thoughts [Recovering/Resolving]
  - Product use in unapproved indication [Unknown]

NARRATIVE: CASE EVENT DATE: 20250101
